FAERS Safety Report 17360716 (Version 1)
Quarter: 2020Q1

REPORT INFORMATION
  Report Type: Spontaneous
  Country: US (occurrence: US)
  Receive Date: 20200131
  Receipt Date: 20200131
  Transmission Date: 20200409
  Serious: Yes (Hospitalization)
  Sender: FDA-Public Use
  Company Number: None

PATIENT
  Age: 51 Year
  Sex: Male

DRUGS (12)
  1. GABAPENTIN. [Concomitant]
     Active Substance: GABAPENTIN
  2. MELOXICAM. [Concomitant]
     Active Substance: MELOXICAM
  3. QUETIAPINE. [Concomitant]
     Active Substance: QUETIAPINE
  4. CLONAZEPAM. [Concomitant]
     Active Substance: CLONAZEPAM
  5. DULOXETINE. [Concomitant]
     Active Substance: DULOXETINE
  6. OXYCODONE [Concomitant]
     Active Substance: OXYCODONE
  7. HUMIRA [Suspect]
     Active Substance: ADALIMUMAB
     Indication: PSORIASIS
     Dosage: ?          OTHER FREQUENCY:Q OTHER WEEK;?
     Route: 058
     Dates: start: 20180607
  8. TOPIRAMATE. [Concomitant]
     Active Substance: TOPIRAMATE
  9. ESCITALOPRAM [Concomitant]
     Active Substance: ESCITALOPRAM OXALATE
  10. AMITRIPTYLIN [Concomitant]
     Active Substance: AMITRIPTYLINE
  11. LISINOPRIL. [Concomitant]
     Active Substance: LISINOPRIL
  12. OXCARBAZEPIN [Concomitant]
     Active Substance: OXCARBAZEPINE

REACTIONS (1)
  - Accident [None]
